FAERS Safety Report 15725615 (Version 2)
Quarter: 2019Q1

REPORT INFORMATION
  Report Type: Report from Study
  Country: GB (occurrence: GB)
  Receive Date: 20181215
  Receipt Date: 20190207
  Transmission Date: 20190417
  Serious: Yes (Hospitalization)
  Sender: FDA-Public Use
  Company Number: GB-TEVA-2018-GB-986589

PATIENT
  Age: 74 Year
  Sex: Female
  Weight: 98.8 kg

DRUGS (14)
  1. PARACETAMOL [Concomitant]
     Active Substance: ACETAMINOPHEN
     Indication: PAIN
     Dosage: 1 GRAM DAILY;
     Route: 048
     Dates: start: 201504, end: 20150706
  2. ENOXAPARIN [Concomitant]
     Active Substance: ENOXAPARIN
     Indication: THROMBOSIS PROPHYLAXIS
     Dosage: 40 MG
     Route: 048
     Dates: start: 20150630
  3. SODIUM CLODRONATE [Concomitant]
     Active Substance: CLODRONIC ACID
     Indication: PLASMA CELL MYELOMA
     Dosage: 1040 MILLIGRAM DAILY; 1040 MG
     Route: 065
     Dates: start: 200808, end: 20150728
  4. DEXAMETHASONE. [Suspect]
     Active Substance: DEXAMETHASONE
     Indication: PLASMA CELL MYELOMA
     Dosage: 40 MG
     Route: 065
     Dates: start: 20150630
  5. DEXAMETHASONE. [Suspect]
     Active Substance: DEXAMETHASONE
     Route: 065
     Dates: start: 20080811
  6. DEXAMETHASONE. [Suspect]
     Active Substance: DEXAMETHASONE
     Route: 065
     Dates: start: 20150701, end: 20150722
  7. DEXAMETHASONE. [Suspect]
     Active Substance: DEXAMETHASONE
     Route: 065
     Dates: start: 20110308, end: 20110520
  8. ASPIRIN. [Concomitant]
     Active Substance: ASPIRIN
     Indication: THROMBOSIS PROPHYLAXIS
     Dosage: 75 MILLIGRAM DAILY;
     Route: 048
     Dates: start: 20150120, end: 201506
  9. POMALIDOMIDE [Suspect]
     Active Substance: POMALIDOMIDE
     Indication: PLASMA CELL MYELOMA
     Dosage: 4 MG
     Route: 048
     Dates: start: 20150630
  10. POMALIDOMIDE [Suspect]
     Active Substance: POMALIDOMIDE
     Dosage: 4 MG
     Route: 048
     Dates: start: 20150701, end: 20150721
  11. CODEINE [Concomitant]
     Active Substance: CODEINE
     Indication: PAIN
     Dosage: 30 MILLIGRAM DAILY;
     Route: 048
     Dates: start: 201504, end: 20150706
  12. ORAMORPH [Concomitant]
     Active Substance: MORPHINE SULFATE
     Indication: PAIN
     Dosage: 2.5 ML
     Route: 065
     Dates: start: 20150706, end: 20150828
  13. AMLODIPINE [Concomitant]
     Active Substance: AMLODIPINE BESYLATE
     Indication: HYPERTENSION
     Dosage: 5 MILLIGRAM DAILY;
     Route: 048
     Dates: start: 2010, end: 20150622
  14. OMEPRAZOLE. [Concomitant]
     Active Substance: OMEPRAZOLE
     Indication: PRODUCT USED FOR UNKNOWN INDICATION
     Dosage: 20 MG
     Route: 065
     Dates: start: 20150630

REACTIONS (4)
  - Arthritis reactive [Recovered/Resolved]
  - Oedema peripheral [Not Recovered/Not Resolved]
  - Arthralgia [Recovered/Resolved]
  - Blood alkaline phosphatase increased [Recovering/Resolving]

NARRATIVE: CASE EVENT DATE: 20150717
